FAERS Safety Report 7864358-3 (Version None)
Quarter: 2011Q4

REPORT INFORMATION
  Report Type: 
  Country: None (occurrence: None)
  Receive Date: 20111028
  Receipt Date: 20111020
  Transmission Date: 20120403
  Serious: Yes (Other)
  Sender: FDA-Public Use
  Company Number: KR-ASTELLAS-2011JP007594

PATIENT
  Age: 11 Year
  Sex: Female

DRUGS (3)
  1. MYCOPHENOLATE MOFETIL [Suspect]
     Indication: IMMUNOSUPPRESSANT DRUG THERAPY
     Dosage: 1000 MG, BID
     Route: 048
  2. FLUCONAZOLE [Suspect]
     Indication: IMMUNOSUPPRESSANT DRUG THERAPY
     Dosage: 0.2 NG/KG, UNKNOWN/D
     Route: 048
  3. METHYLPREDNISOLONE [Suspect]
     Indication: IMMUNOSUPPRESSANT DRUG THERAPY
     Dosage: 25 MG, BID
     Route: 048

REACTIONS (2)
  - CEREBRAL INFARCTION [None]
  - CEREBROVASCULAR STENOSIS [None]
